FAERS Safety Report 7073813-8 (Version None)
Quarter: 2010Q4

REPORT INFORMATION
  Report Type: 
  Country: None (occurrence: None)
  Receive Date: 20101029
  Receipt Date: 20101001
  Transmission Date: 20110411
  Serious: No
  Sender: FDA-Public Use
  Company Number: A0876531A

PATIENT
  Age: 88 Year
  Sex: Male

DRUGS (10)
  1. ADVAIR DISKUS 100/50 [Suspect]
     Indication: CHRONIC OBSTRUCTIVE PULMONARY DISEASE
     Route: 055
  2. DIGOXIN [Concomitant]
  3. NAMENDA [Concomitant]
  4. TERAZOSIN HCL [Concomitant]
  5. PROSTATE MEDICATION [Concomitant]
  6. LASIX [Concomitant]
  7. AMBIEN [Concomitant]
  8. IRON [Concomitant]
  9. ASPIRIN [Concomitant]
  10. OMEPRAZOLE [Concomitant]

REACTIONS (3)
  - DRUG INEFFECTIVE [None]
  - ILL-DEFINED DISORDER [None]
  - PRODUCT QUALITY ISSUE [None]
